FAERS Safety Report 4523932-2 (Version None)
Quarter: 2004Q4

REPORT INFORMATION
  Report Type: 
  Country: None (occurrence: None)
  Receive Date: 20041209
  Receipt Date: 20041201
  Transmission Date: 20050328
  Serious: Yes (Hospitalization)
  Sender: FDA-Public Use
  Company Number: 2004UW24715

PATIENT
  Sex: Male

DRUGS (1)
  1. IRESSA [Suspect]

REACTIONS (1)
  - THROMBOSIS [None]
